FAERS Safety Report 8301823-9 (Version None)
Quarter: 2012Q2

REPORT INFORMATION
  Report Type: 
  Country: None (occurrence: None)
  Receive Date: 20120413
  Receipt Date: 20120413
  Transmission Date: 20120825
  Serious: Yes (Hospitalization)
  Sender: FDA-Public Use
  Company Number: None

PATIENT
  Sex: Female
  Weight: 63.5036 kg

DRUGS (3)
  1. PREMARIN [Concomitant]
  2. LEXAPRO [Suspect]
     Indication: DEPRESSION
     Dates: start: 20120402, end: 20120403
  3. LEXAPRO [Suspect]
     Indication: ANXIETY
     Dates: start: 20120402, end: 20120403

REACTIONS (7)
  - SKULL FRACTURE [None]
  - DIZZINESS [None]
  - FALL [None]
  - PNEUMOCEPHALUS [None]
  - NAUSEA [None]
  - SYNCOPE [None]
  - INSOMNIA [None]
